FAERS Safety Report 5213153-2 (Version None)
Quarter: 2007Q1

REPORT INFORMATION
  Report Type: 
  Country: None (occurrence: None)
  Receive Date: 20070119
  Receipt Date: 20070110
  Transmission Date: 20070707
  Serious: Yes (Other)
  Sender: FDA-Public Use
  Company Number: 2006300114

PATIENT
  Age: 24 Year
  Sex: Female

DRUGS (2)
  1. NICORETTE [Suspect]
     Indication: SMOKING CESSATION THERAPY
     Route: 048
  2. NIQUITIN CQ [Suspect]
     Route: 062

REACTIONS (11)
  - ABDOMINAL PAIN UPPER [None]
  - BLOOD PRESSURE INCREASED [None]
  - COLD SWEAT [None]
  - DIARRHOEA [None]
  - FEELING HOT [None]
  - HEADACHE [None]
  - MALAISE [None]
  - MIGRAINE [None]
  - NAUSEA [None]
  - TREATMENT NONCOMPLIANCE [None]
  - VOMITING [None]
